FAERS Safety Report 8005687-2 (Version None)
Quarter: 2011Q4

REPORT INFORMATION
  Report Type: 
  Country: None (occurrence: None)
  Receive Date: 20111223
  Receipt Date: 20111220
  Transmission Date: 20120403
  Serious: Yes (Other)
  Sender: FDA-Public Use
  Company Number: US-BMSGILMSD-2011-0045146

PATIENT
  Sex: Male

DRUGS (2)
  1. ISENTRESS [Concomitant]
     Indication: HIV INFECTION
     Dosage: UNK
     Dates: start: 20091029
  2. EFAVIRENZ/EMTRICITABINE/TENOFOVIR DISOPROXIL FUMARATE [Suspect]
     Indication: HIV INFECTION
     Dosage: UNK
     Dates: start: 20061107

REACTIONS (5)
  - HEPATIC ENZYME INCREASED [None]
  - DRUG RESISTANCE [None]
  - BILE DUCT STENOSIS [None]
  - JAUNDICE CHOLESTATIC [None]
  - BLOOD BILIRUBIN INCREASED [None]
